FAERS Safety Report 22609852 (Version 1)
Quarter: 2023Q2

REPORT INFORMATION
  Report Type: Spontaneous
  Country: GF (occurrence: GF)
  Receive Date: 20230616
  Receipt Date: 20230616
  Transmission Date: 20230721
  Serious: Yes (Other)
  Sender: FDA-Public Use
  Company Number: GF-SUN PHARMACEUTICAL INDUSTRIES LTD-2023RR-394142

PATIENT
  Age: 61 Year
  Sex: Male

DRUGS (2)
  1. VALACYCLOVIR [Suspect]
     Active Substance: VALACYCLOVIR HYDROCHLORIDE
     Indication: Herpes simplex
     Dosage: 1000 MILLIGRAM, BID
     Route: 065
  2. THALIDOMIDE [Suspect]
     Active Substance: THALIDOMIDE
     Indication: Herpes simplex
     Dosage: THIRD-LINE TREATMENT
     Route: 065

REACTIONS (2)
  - Neurotoxicity [Unknown]
  - Disease recurrence [Recovered/Resolved]
